FAERS Safety Report 12795329 (Version 1)
Quarter: 2016Q3

REPORT INFORMATION
  Report Type: Spontaneous
  Country: JP (occurrence: JP)
  Receive Date: 20160929
  Receipt Date: 20160929
  Transmission Date: 20161109
  Serious: Yes (Other)
  Sender: FDA-Public Use
  Company Number: JP-JNJFOC-20160924547

PATIENT
  Sex: Male

DRUGS (1)
  1. ZYTIGA [Suspect]
     Active Substance: ABIRATERONE ACETATE
     Indication: PROSTATE CANCER
     Route: 048

REACTIONS (6)
  - Oedema [Unknown]
  - Malaise [Unknown]
  - Hepatic function abnormal [Unknown]
  - Hypokalaemia [Unknown]
  - Bone marrow failure [Unknown]
  - Headache [Unknown]
